FAERS Safety Report 8417876-3 (Version None)
Quarter: 2012Q2

REPORT INFORMATION
  Report Type: 
  Country: None (occurrence: None)
  Receive Date: 20120607
  Receipt Date: 20120531
  Transmission Date: 20120825
  Serious: Yes (Other)
  Sender: FDA-Public Use
  Company Number: US-PFIZER INC-2012132467

PATIENT
  Sex: Female

DRUGS (2)
  1. LYRICA [Suspect]
     Dosage: 25 MG, 1X/DAY
  2. LYRICA [Suspect]
     Dosage: 200 MG, 2X/DAY

REACTIONS (3)
  - WEIGHT INCREASED [None]
  - FEELING ABNORMAL [None]
  - FATIGUE [None]
